FAERS Safety Report 9729515 (Version 1)
Quarter: 2013Q4

REPORT INFORMATION
  Report Type: Spontaneous
  Country: US (occurrence: US)
  Receive Date: 20131204
  Receipt Date: 20131204
  Transmission Date: 20140711
  Serious: No
  Sender: FDA-Public Use
  Company Number: US-GILEAD-2009-0022101

PATIENT
  Sex: Female
  Weight: 74.39 kg

DRUGS (12)
  1. LETAIRIS [Suspect]
     Indication: PULMONARY ARTERIAL HYPERTENSION
     Route: 048
     Dates: start: 20090507
  2. REVATIO [Concomitant]
  3. VERAPAMIL [Concomitant]
  4. BROVANA [Concomitant]
  5. SPIRIVA [Concomitant]
  6. PREDNISONE [Concomitant]
  7. NEXIUM [Concomitant]
  8. EFFEXOR [Concomitant]
  9. SYNTHROID [Concomitant]
  10. VITAMIN B6 [Concomitant]
  11. OMEGA 3 [Concomitant]
  12. VITAMIN C [Concomitant]

REACTIONS (1)
  - Headache [Unknown]
